FAERS Safety Report 9996388 (Version 1)
Quarter: 2014Q1

REPORT INFORMATION
  Report Type: Spontaneous
  Country: US (occurrence: None)
  Receive Date: 20140310
  Receipt Date: 20140310
  Transmission Date: 20141002
  Serious: No
  Sender: FDA-Public Use
  Company Number: None

PATIENT
  Sex: 0

DRUGS (1)
  1. EQUATE MODERATE GENTLE LUBRICANT EYE DROPS HYPROMELLOSE 0.3% [Suspect]
     Dosage: 30 MILILITERS BOTTLE?LOT/SERIAL#?12175,GN2874 56350?EXP/USE BY DATE?05/14

REACTIONS (5)
  - Vision blurred [None]
  - Product odour abnormal [None]
  - Product taste abnormal [None]
  - Chromatopsia [None]
  - Local swelling [None]
